FAERS Safety Report 22004237 (Version 2)
Quarter: 2023Q1

REPORT INFORMATION
  Report Type: Report from Study
  Country: MX (occurrence: MX)
  Receive Date: 20230217
  Receipt Date: 20230320
  Transmission Date: 20230418
  Serious: Yes (Other)
  Sender: FDA-Public Use
  Company Number: MX-002147023-NVSC2023MX036372

PATIENT
  Sex: Female
  Weight: 67 kg

DRUGS (1)
  1. TASIGNA [Suspect]
     Active Substance: NILOTINIB
     Indication: Chronic myeloid leukaemia
     Dosage: UNK (5 YEARS AGO APPROXIMATELY)
     Route: 048

REACTIONS (18)
  - Asphyxia [Unknown]
  - Overweight [Unknown]
  - Epigastric discomfort [Unknown]
  - COVID-19 [Unknown]
  - Influenza [Not Recovered/Not Resolved]
  - Hunger [Unknown]
  - Colitis [Unknown]
  - Abdominal pain upper [Unknown]
  - Blood pressure abnormal [Unknown]
  - Gastritis [Unknown]
  - Asthenia [Unknown]
  - Malaise [Not Recovered/Not Resolved]
  - Anxiety [Unknown]
  - Dry skin [Unknown]
  - Abdominal discomfort [Unknown]
  - Dehydration [Unknown]
  - Weight decreased [Unknown]
  - Dizziness [Unknown]
